FAERS Safety Report 6645544-7 (Version None)
Quarter: 2010Q1

REPORT INFORMATION
  Report Type: 
  Country: None (occurrence: None)
  Receive Date: 20100323
  Receipt Date: 20100304
  Transmission Date: 20100710
  Serious: No
  Sender: FDA-Public Use
  Company Number: 2009BI015484

PATIENT
  Age: 52 Year
  Sex: Female

DRUGS (2)
  1. TYSABRI [Suspect]
     Indication: MULTIPLE SCLEROSIS
     Route: 042
     Dates: start: 20090428
  2. ADDERALL 30 [Concomitant]
     Indication: FATIGUE

REACTIONS (4)
  - CHILLS [None]
  - FATIGUE [None]
  - MUCOUS STOOLS [None]
  - VISION BLURRED [None]
